FAERS Safety Report 24092018 (Version 1)
Quarter: 2024Q3

REPORT INFORMATION
  Report Type: Spontaneous
  Country: US (occurrence: US)
  Receive Date: 20240715
  Receipt Date: 20240715
  Transmission Date: 20241017
  Serious: No
  Sender: PERRIGO
  Company Number: US-PERRIGO-24US002168

PATIENT
  Age: 25 Year
  Sex: Male
  Weight: 69 kg

DRUGS (6)
  1. MINOXIDIL [Suspect]
     Active Substance: MINOXIDIL
     Indication: Alopecia
     Dosage: 1 ML, BID TO SCALP
     Route: 061
     Dates: start: 202402
  2. MINOXIDIL [Suspect]
     Active Substance: MINOXIDIL
     Indication: Hypotrichosis
     Dosage: UNKNOWN, BID TO BEARD
     Route: 061
     Dates: start: 202402
  3. MINOXIDIL [Suspect]
     Active Substance: MINOXIDIL
     Dosage: 1 ML, BID TO SCALP
     Route: 061
  4. MINOXIDIL [Suspect]
     Active Substance: MINOXIDIL
     Dosage: UNKNOWN, BID TO BEARD
     Route: 061
  5. MINOXIDIL [Suspect]
     Active Substance: MINOXIDIL
     Dosage: 1 ML, BID TO SCALP
     Route: 061
     Dates: start: 20240216
  6. MINOXIDIL [Suspect]
     Active Substance: MINOXIDIL
     Dosage: UNKNOWN, BID TO BEARD
     Route: 061
     Dates: start: 20240216

REACTIONS (2)
  - Application site pruritus [Not Recovered/Not Resolved]
  - Product administered at inappropriate site [Unknown]

NARRATIVE: CASE EVENT DATE: 20240201
